FAERS Safety Report 19079691 (Version 1)
Quarter: 2021Q1

REPORT INFORMATION
  Report Type: Spontaneous
  Country: IT (occurrence: IT)
  Receive Date: 20210331
  Receipt Date: 20210331
  Transmission Date: 20210420
  Serious: Yes (Hospitalization)
  Sender: FDA-Public Use
  Company Number: IT-VALIDUS PHARMACEUTICALS LLC-IT-2021VAL000213

PATIENT
  Age: 30 Year
  Sex: Male

DRUGS (9)
  1. SIMVASTATIN. [Suspect]
     Active Substance: SIMVASTATIN
     Indication: DRUG ABUSE
     Dosage: 100 MG, UNK
     Route: 048
     Dates: start: 20180716, end: 20180716
  2. CARBAMAZEPINE. [Suspect]
     Active Substance: CARBAMAZEPINE
     Indication: DRUG ABUSE
     Dosage: UNK
     Route: 048
     Dates: start: 20180716, end: 20180716
  3. VALPROATE SODIUM. [Suspect]
     Active Substance: VALPROATE SODIUM
     Indication: DRUG ABUSE
     Dosage: UNK
     Route: 048
     Dates: start: 20180716, end: 20180716
  4. FUROSEMIDE. [Suspect]
     Active Substance: FUROSEMIDE
     Indication: DRUG ABUSE
     Dosage: 125 MG, UNK
     Route: 048
     Dates: start: 20180716, end: 20180716
  5. LEVETIRACETAM. [Suspect]
     Active Substance: LEVETIRACETAM
     Indication: DRUG ABUSE
     Dosage: UNK
     Route: 048
     Dates: start: 20180716, end: 20180716
  6. LAMOTRIGINE. [Suspect]
     Active Substance: LAMOTRIGINE
     Indication: DRUG ABUSE
     Dosage: UNK
     Route: 048
     Dates: start: 20180716, end: 20180716
  7. WARFARIN SODIUM. [Suspect]
     Active Substance: WARFARIN SODIUM
     Indication: DRUG ABUSE
     Dosage: UNK
     Route: 048
     Dates: start: 20180716, end: 20180716
  8. LANSOPRAZOLE. [Suspect]
     Active Substance: LANSOPRAZOLE
     Indication: DRUG ABUSE
     Dosage: UNK
     Route: 048
     Dates: start: 20180716, end: 20180716
  9. BISOPROLOL FUMARATE. [Suspect]
     Active Substance: BISOPROLOL FUMARATE
     Indication: DRUG ABUSE
     Dosage: 37.5 MG, UNK
     Route: 048
     Dates: start: 20180716, end: 20180716

REACTIONS (5)
  - Blood creatine phosphokinase increased [Recovering/Resolving]
  - Drug abuse [Recovering/Resolving]
  - Sopor [Recovering/Resolving]
  - Off label use [Unknown]
  - Blood creatinine increased [Recovering/Resolving]

NARRATIVE: CASE EVENT DATE: 20180716
